FAERS Safety Report 17882844 (Version 2)
Quarter: 2020Q3

REPORT INFORMATION
  Report Type: Report from Study
  Country: None (occurrence: CO)
  Receive Date: 20200611
  Receipt Date: 20200716
  Transmission Date: 20201103
  Serious: Yes (Other)
  Sender: FDA-Public Use
  Company Number: CO-ABBVIE-20K-036-3438698-00

PATIENT
  Sex: Male
  Weight: 68 kg

DRUGS (2)
  1. HUMIRA [Suspect]
     Active Substance: ADALIMUMAB
     Indication: ANKYLOSING SPONDYLITIS
     Route: 058
     Dates: start: 20090107
  2. HUMIRA [Suspect]
     Active Substance: ADALIMUMAB
     Indication: ANKYLOSING SPONDYLITIS
     Route: 058
     Dates: end: 20200530

REACTIONS (12)
  - Ear infection [Recovering/Resolving]
  - Bronchitis [Recovering/Resolving]
  - Vertigo [Recovering/Resolving]
  - Nephrolithiasis [Recovering/Resolving]
  - Musculoskeletal stiffness [Recovering/Resolving]
  - Amnesia [Recovering/Resolving]
  - Urinary tract infection [Recovering/Resolving]
  - Tympanic membrane perforation [Not Recovered/Not Resolved]
  - Back pain [Recovering/Resolving]
  - Deafness unilateral [Not Recovered/Not Resolved]
  - Renal disorder [Recovering/Resolving]
  - Influenza [Not Recovered/Not Resolved]

NARRATIVE: CASE EVENT DATE: 2019
